FAERS Safety Report 4828153-1 (Version None)
Quarter: 2005Q4

REPORT INFORMATION
  Report Type: 
  Country: None (occurrence: None)
  Receive Date: 20051110
  Receipt Date: 20051028
  Transmission Date: 20060501
  Serious: Yes (Life-Threatening, Hospitalization)
  Sender: FDA-Public Use
  Company Number: HQWYE993913OCT05

PATIENT
  Age: 35 Year
  Sex: Female

DRUGS (4)
  1. PREMARIN [Suspect]
     Indication: MENSTRUATION IRREGULAR
     Dosage: ORAL
     Route: 048
     Dates: start: 19981101, end: 20051004
  2. HYSRON (MEDROXYPROGESTERONE ACETATE) [Concomitant]
  3. CLOMID (CLOMIFENE CITRATE) [Concomitant]
  4. CLOMID (CLOMIFENE CITRATE) [Concomitant]

REACTIONS (3)
  - ILEUS [None]
  - PANCREATIC ABSCESS [None]
  - PANCREATITIS ACUTE [None]
